FAERS Safety Report 11127390 (Version 1)
Quarter: 2015Q2

REPORT INFORMATION
  Report Type: Spontaneous
  Country: US (occurrence: None)
  Receive Date: 20150520
  Receipt Date: 20150520
  Transmission Date: 20150821
  Serious: Yes (Hospitalization)
  Sender: FDA-Public Use
  Company Number: None

PATIENT
  Age: 66 Year
  Sex: Female
  Weight: 56.8 kg

DRUGS (2)
  1. CAPECITABINE 150 MG TEVA [Suspect]
     Active Substance: CAPECITABINE
     Indication: COLORECTAL CANCER
     Dosage: 150  BID  PO 2 WEEKS ON AND 2 WEEKS OFF
     Route: 048
     Dates: start: 20140207
  2. CAPECITABINE. [Suspect]
     Active Substance: CAPECITABINE
     Indication: COLORECTAL CANCER
     Dosage: 1000MG BID  PO 2 WEEKS ON AND 2 WEEK SOFF
     Route: 048
     Dates: start: 20140207

REACTIONS (3)
  - Myocardial infarction [None]
  - Adverse drug reaction [None]
  - Therapy cessation [None]

NARRATIVE: CASE EVENT DATE: 20150408
